FAERS Safety Report 4652738-9 (Version None)
Quarter: 2005Q2

REPORT INFORMATION
  Report Type: 
  Country: None (occurrence: None)
  Receive Date: 20050502
  Receipt Date: 20050418
  Transmission Date: 20051028
  Serious: Yes (Other)
  Sender: FDA-Public Use
  Company Number: 2004091047

PATIENT
  Age: 52 Year
  Sex: Female
  Weight: 83.9154 kg

DRUGS (2)
  1. SUDAFED 12 HOUR [Suspect]
     Indication: NASAL CONGESTION
     Dosage: 2 TIMES DAILY, ORAL
     Route: 048
     Dates: end: 20041001
  2. WARFARIN SODIUM [Concomitant]

REACTIONS (7)
  - ANOREXIA [None]
  - LUNG NEOPLASM MALIGNANT [None]
  - METASTASES TO LUNG [None]
  - METASTASES TO LYMPH NODES [None]
  - SINUSITIS [None]
  - TUMOUR MARKER INCREASED [None]
  - WEIGHT DECREASED [None]
